FAERS Safety Report 24432430 (Version 2)
Quarter: 2025Q1

REPORT INFORMATION
  Report Type: Spontaneous
  Country: CH (occurrence: CH)
  Receive Date: 20241014
  Receipt Date: 20250106
  Transmission Date: 20250408
  Serious: Yes (Other)
  Sender: CSL BEHRING
  Company Number: CH-BEH-2024181081

PATIENT
  Age: 69 Year
  Sex: Male

DRUGS (3)
  1. PRIVIGEN [Suspect]
     Active Substance: HUMAN IMMUNOGLOBULIN G
     Route: 065
     Dates: start: 2021
  2. VENETOCLAX [Concomitant]
     Active Substance: VENETOCLAX
  3. KIOVIG [Concomitant]
     Active Substance: HUMAN IMMUNOGLOBULIN G

REACTIONS (11)
  - Bronchiectasis [Unknown]
  - Urosepsis [Unknown]
  - Rhinovirus infection [Unknown]
  - Respiratory syncytial virus infection [Unknown]
  - COVID-19 [Unknown]
  - Urinary tract infection bacterial [Unknown]
  - Rhinovirus infection [Unknown]
  - Otitis externa [Unknown]
  - Coronavirus infection [Unknown]
  - Haemophilus infection [Unknown]
  - COVID-19 [Unknown]

NARRATIVE: CASE EVENT DATE: 20220202
